FAERS Safety Report 6971915-5 (Version None)
Quarter: 2010Q3

REPORT INFORMATION
  Report Type: 
  Country: None (occurrence: None)
  Receive Date: 20100908
  Receipt Date: 20100908
  Transmission Date: 20110219
  Serious: Yes (Hospitalization)
  Sender: FDA-Public Use
  Company Number: None

PATIENT
  Age: 50 Year
  Sex: Female
  Weight: 115.6 kg

DRUGS (17)
  1. NATALIZUMAB 300MG ELAN PHARMACEUTICALS [Suspect]
     Indication: MULTIPLE SCLEROSIS
     Dosage: 300MG EVERY 4 WEEKS IV
     Route: 042
     Dates: start: 20100902, end: 20100902
  2. METFORMIN HYDROCHLORIDE [Concomitant]
  3. QUINAPRIL [Concomitant]
  4. INDAPAMIDE [Concomitant]
  5. ALBUTEROL SULATE [Concomitant]
  6. AMBIEN [Concomitant]
  7. AMITIZA [Concomitant]
  8. ASPIRIN [Concomitant]
  9. BACLOFEN [Concomitant]
  10. COLBENEMID [Concomitant]
  11. FLUTICASONE INHALER [Concomitant]
  12. GABAPENTIN [Concomitant]
  13. LIPITOR [Concomitant]
  14. NASONEX NS [Concomitant]
  15. POLYETHYLENE GLYCOL [Concomitant]
  16. COSOPT [Concomitant]
  17. BECLOMETHASONE INHALER [Concomitant]

REACTIONS (4)
  - BACK PAIN [None]
  - CHEST PAIN [None]
  - INFUSION RELATED REACTION [None]
  - NAUSEA [None]
